FAERS Safety Report 5265322-3 (Version None)
Quarter: 2007Q1

REPORT INFORMATION
  Report Type: 
  Country: None (occurrence: None)
  Receive Date: 20070314
  Receipt Date: 20070302
  Transmission Date: 20070707
  Serious: Yes (Other)
  Sender: FDA-Public Use
  Company Number: GB-PFIZER INC-2007016937

PATIENT
  Sex: Female

DRUGS (4)
  1. LYRICA [Suspect]
     Indication: FACIAL PAIN
     Route: 048
  2. ESTRADIOL [Concomitant]
  3. LOSEC [Concomitant]
     Route: 048
  4. SUMATRIPTAN SUCCINATE [Concomitant]
     Route: 048

REACTIONS (2)
  - PERIPHERAL COLDNESS [None]
  - RAYNAUD'S PHENOMENON [None]
